FAERS Safety Report 15837065 (Version 3)
Quarter: 2019Q2

REPORT INFORMATION
  Report Type: Spontaneous
  Country: BR (occurrence: BR)
  Receive Date: 20190117
  Receipt Date: 20190408
  Transmission Date: 20190711
  Serious: Yes (Hospitalization)
  Sender: FDA-Public Use
  Company Number: BR-B.I. PHARMACEUTICALS,INC./RIDGEFIELD-2019-BI-001462

PATIENT
  Age: 59 Year
  Sex: Male
  Weight: 60 kg

DRUGS (5)
  1. VALPROIC ACID. [Concomitant]
     Active Substance: VALPROIC ACID
     Indication: SEIZURE
     Dosage: 12.5 ML TWICE A DAY BY ORAL ROUTE; DOSE: 250 MG/5ML
     Route: 048
  2. SIFROL ER [Suspect]
     Active Substance: PRAMIPEXOLE
     Indication: PARKINSON^S DISEASE
     Route: 048
     Dates: end: 20190109
  3. PROLOPA [Concomitant]
     Active Substance: BENSERAZIDE\LEVODOPA
     Indication: PARKINSON^S DISEASE
     Dosage: STRENGHT: 200/50 MILLIGRAM; DOSE: 100/25 MILLIGRAM; DAILY DOSE: 300/75 MILLIGRAM
     Route: 048
  4. SIFROL ER [Suspect]
     Active Substance: PRAMIPEXOLE
     Indication: DEMENTIA ALZHEIMER^S TYPE
  5. CLOZAPINA [Concomitant]
     Active Substance: CLOZAPINE
     Indication: PARKINSON^S DISEASE
     Route: 048

REACTIONS (1)
  - Psychomotor hyperactivity [Recovered/Resolved]
